FAERS Safety Report 18556808 (Version 1)
Quarter: 2020Q4

REPORT INFORMATION
  Report Type: Spontaneous
  Country: FR (occurrence: FR)
  Receive Date: 20201128
  Receipt Date: 20201128
  Transmission Date: 20210114
  Serious: Yes (Other)
  Sender: FDA-Public Use
  Company Number: NVSC2020FR316472

PATIENT
  Age: 28 Year
  Sex: Male
  Weight: 78 kg

DRUGS (2)
  1. HYDROCORTISONE. [Suspect]
     Active Substance: HYDROCORTISONE
     Indication: ADJUVANT THERAPY
     Dosage: 100 MG, ONCE/SINGLE
     Route: 042
     Dates: start: 20200930
  2. REMICADE [Suspect]
     Active Substance: INFLIXIMAB
     Indication: CROHN^S DISEASE
     Dosage: 400 MG, ONCE/SINGLE
     Route: 042
     Dates: start: 20200930, end: 20200930

REACTIONS (1)
  - Rash [Recovered/Resolved]

NARRATIVE: CASE EVENT DATE: 20200930
